FAERS Safety Report 7797182-0 (Version None)
Quarter: 2011Q4

REPORT INFORMATION
  Report Type: 
  Country: None (occurrence: None)
  Receive Date: 20111005
  Receipt Date: 20110926
  Transmission Date: 20120403
  Serious: Yes (Other)
  Sender: FDA-Public Use
  Company Number: PHHY2010MX76345

PATIENT
  Age: 56 Year
  Sex: Male

DRUGS (3)
  1. METFORMIN HCL [Concomitant]
     Dosage: UNK
  2. EXFORGE HCT [Suspect]
     Indication: HYPERTENSION
     Dosage: 1 DF, QD
     Route: 048
     Dates: start: 20100901
  3. INTERMEDIATE INSULIN [Concomitant]
     Dosage: PER DAY

REACTIONS (4)
  - BLOOD PRESSURE INADEQUATELY CONTROLLED [None]
  - EYE PAIN [None]
  - EYE HAEMORRHAGE [None]
  - HEADACHE [None]
